FAERS Safety Report 9319662 (Version 1)
Quarter: 2013Q2

REPORT INFORMATION
  Report Type: Spontaneous
  Country: DE (occurrence: DE)
  Receive Date: 20130530
  Receipt Date: 20130530
  Transmission Date: 20140414
  Serious: Yes (Hospitalization, Other)
  Sender: FDA-Public Use
  Company Number: DE-JNJFOC-20130519974

PATIENT
  Age: 47 Year
  Sex: Male

DRUGS (1)
  1. IBUPROFEN [Suspect]
     Indication: PRODUCT USED FOR UNKNOWN INDICATION
     Dosage: 400 MG BEFORE START OF THE RACE AND 400 MG DURING THE RACE
     Route: 065

REACTIONS (3)
  - Bladder disorder [Recovered/Resolved]
  - Anuria [Recovered/Resolved]
  - Haematuria [Recovered/Resolved]
